FAERS Safety Report 13185365 (Version 1)
Quarter: 2017Q1

REPORT INFORMATION
  Report Type: Spontaneous
  Country: US (occurrence: US)
  Receive Date: 20170203
  Receipt Date: 20170203
  Transmission Date: 20170428
  Serious: Yes (Life-Threatening, Hospitalization, Other)
  Sender: FDA-Public Use
  Company Number: US-ELI_LILLY_AND_COMPANY-US201607010673

PATIENT
  Age: 42 Year
  Sex: Male
  Weight: 65 kg

DRUGS (4)
  1. SYNTHROID [Concomitant]
     Active Substance: LEVOTHYROXINE SODIUM
     Indication: HYPOTHYROIDISM
     Dosage: .05 MG, QD
     Route: 048
  2. CYMBALTA [Suspect]
     Active Substance: DULOXETINE HYDROCHLORIDE
     Indication: PRODUCT USED FOR UNKNOWN INDICATION
     Dosage: UNK, UNKNOWN
     Route: 065
  3. VENLAFAXINE [Concomitant]
     Active Substance: VENLAFAXINE HYDROCHLORIDE
     Indication: HYPOTHYROIDISM
     Dosage: 150 MG, QD
     Route: 048
  4. KLONOPIN [Concomitant]
     Active Substance: CLONAZEPAM
     Indication: HYPOTHYROIDISM
     Dosage: 0.25 MG, PRN
     Route: 048

REACTIONS (25)
  - Respiratory arrest [Recovered/Resolved]
  - Hallucination [Recovered/Resolved]
  - Suicidal ideation [Unknown]
  - Tinnitus [Unknown]
  - Poor quality sleep [Unknown]
  - Irritability [Unknown]
  - Anxiety [Unknown]
  - Confusional state [Unknown]
  - Tremor [Unknown]
  - Delirium [Recovered/Resolved]
  - Seizure [Unknown]
  - Status epilepticus [Recovered/Resolved]
  - Sensory disturbance [Unknown]
  - Vertigo [Unknown]
  - Dizziness [Unknown]
  - Headache [Unknown]
  - Agitation [Unknown]
  - Affect lability [Unknown]
  - Encephalopathy [Recovered/Resolved]
  - Crying [Unknown]
  - Acute respiratory failure [Recovered/Resolved]
  - Fatigue [Unknown]
  - Lethargy [Unknown]
  - Drug withdrawal syndrome [Unknown]
  - Paraesthesia [Unknown]

NARRATIVE: CASE EVENT DATE: 201502
